FAERS Safety Report 9619832 (Version 1)
Quarter: 2013Q4

REPORT INFORMATION
  Report Type: Spontaneous
  Country: US (occurrence: US)
  Receive Date: 20131014
  Receipt Date: 20131014
  Transmission Date: 20140711
  Serious: Yes (Other)
  Sender: FDA-Public Use
  Company Number: US-TEVA-437241USA

PATIENT
  Age: 37 Year
  Sex: Male

DRUGS (3)
  1. ZOLPIDEM [Suspect]
     Indication: INSOMNIA
     Dosage: 5MG
     Route: 065
  2. ZOLPIDEM [Suspect]
     Indication: INSOMNIA
     Dosage: 10MG
     Route: 065
  3. BUPROPION [Concomitant]
     Indication: NICOTINE DEPENDENCE
     Route: 065

REACTIONS (3)
  - Intentional self-injury [Unknown]
  - Amnestic disorder [Unknown]
  - Abnormal dreams [Unknown]
